FAERS Safety Report 5571810-2 (Version None)
Quarter: 2007Q4

REPORT INFORMATION
  Report Type: 
  Country: None (occurrence: None)
  Receive Date: 20071221
  Receipt Date: 20071029
  Transmission Date: 20080405
  Serious: No
  Sender: FDA-Public Use
  Company Number: US-BAYER-US-2007-041140

PATIENT
  Sex: Female
  Weight: 50 kg

DRUGS (3)
  1. YAZ [Suspect]
     Indication: CONTRACEPTION
     Route: 048
     Dates: start: 20061001
  2. VITAMINS [Concomitant]
  3. CALCIUM [Concomitant]

REACTIONS (3)
  - MENSTRUATION DELAYED [None]
  - METRORRHAGIA [None]
  - OLIGOMENORRHOEA [None]
